FAERS Safety Report 12972945 (Version 3)
Quarter: 2017Q2

REPORT INFORMATION
  Report Type: Spontaneous
  Country: US (occurrence: US)
  Receive Date: 20161124
  Receipt Date: 20170407
  Transmission Date: 20170830
  Serious: Yes (Hospitalization, Other)
  Sender: FDA-Public Use
  Company Number: US-PFIZER INC-2015148076

PATIENT
  Age: 70 Year
  Sex: Male
  Weight: 114 kg

DRUGS (20)
  1. SIMVASTATIN. [Concomitant]
     Active Substance: SIMVASTATIN
     Dosage: 20 MG, DAILY
     Route: 048
  2. SUTENT [Suspect]
     Active Substance: SUNITINIB MALATE
     Indication: RENAL CELL CARCINOMA
     Dosage: 25 MG, CYCLIC (28 DAYS ON/14 DAYS OFF)
     Route: 048
     Dates: start: 2012
  3. COREG [Concomitant]
     Active Substance: CARVEDILOL
     Dosage: 80 MG, DAILY
     Route: 048
  4. CLONIDINE. [Concomitant]
     Active Substance: CLONIDINE
     Dosage: 0.2 MG, 2X/DAY
     Route: 048
  5. CIALIS [Concomitant]
     Active Substance: TADALAFIL
     Dosage: 2.5 MG, DAILY
     Route: 048
  6. VICTOZA [Concomitant]
     Active Substance: LIRAGLUTIDE
     Dosage: 18 MG, UNK
  7. CARVEDILOL. [Concomitant]
     Active Substance: CARVEDILOL
     Dosage: UNK
  8. SUTENT [Suspect]
     Active Substance: SUNITINIB MALATE
     Indication: METASTASES TO LUNG
     Dosage: 25 MG, CYCLIC (Q 28 DAYS)
     Dates: start: 201304
  9. SUTENT [Suspect]
     Active Substance: SUNITINIB MALATE
     Dosage: 50 MG, CYCLIC (50 MG QD D1-D28 Q 42D X6)
     Route: 048
     Dates: start: 20130604
  10. SUTENT [Suspect]
     Active Substance: SUNITINIB MALATE
     Dosage: 50 MG, DAILY
     Route: 048
     Dates: start: 20160415
  11. SUTENT [Suspect]
     Active Substance: SUNITINIB MALATE
     Dosage: 25 MG, DAILY
     Route: 048
     Dates: start: 20160506
  12. RHINOCORT AQUA [Concomitant]
     Active Substance: BUDESONIDE
     Dosage: 32 UG, UNK
     Route: 045
  13. ESTER C + BIOFLAVONOIDS [Concomitant]
     Dosage: UNK (ESTER-C 1000 MG/BIOFLAVONOIDS 200 MG)
  14. TRADJENTA [Concomitant]
     Active Substance: LINAGLIPTIN
     Dosage: UNK
  15. BAYER ASPIRIN [Concomitant]
     Active Substance: ASPIRIN
     Dosage: 325 MG, DAILY
     Route: 048
  16. TRULICITY [Concomitant]
     Active Substance: DULAGLUTIDE
     Dosage: UNK UNK, WEEKLY (0.75 MG/0.5ML )
     Route: 058
     Dates: end: 2015
  17. FISH OIL [Concomitant]
     Active Substance: FISH OIL
     Dosage: 1000 MG, DAILY
     Route: 048
  18. LANTUS [Concomitant]
     Active Substance: INSULIN GLARGINE
     Dosage: 22 IU, 2X/DAY
  19. LANTUS [Concomitant]
     Active Substance: INSULIN GLARGINE
     Dosage: 100 IU/ML, 2X/DAY
     Route: 058
  20. COQ10 [Concomitant]
     Active Substance: UBIDECARENONE
     Dosage: 100 MG, DAILY
     Route: 048

REACTIONS (21)
  - Viral upper respiratory tract infection [Not Recovered/Not Resolved]
  - Lip ulceration [Recovered/Resolved]
  - Tinnitus [Unknown]
  - Hepatic enzyme abnormal [Unknown]
  - Hypoacusis [Not Recovered/Not Resolved]
  - Palmar-plantar erythrodysaesthesia syndrome [Recovered/Resolved]
  - Leukopenia [Not Recovered/Not Resolved]
  - Chest pain [Not Recovered/Not Resolved]
  - Mouth ulceration [Recovered/Resolved]
  - Thrombocytopenia [Not Recovered/Not Resolved]
  - Pain in extremity [Unknown]
  - Blood creatinine increased [Not Recovered/Not Resolved]
  - Pancytopenia [Recovered/Resolved]
  - Asthenia [Not Recovered/Not Resolved]
  - Weight decreased [Unknown]
  - Axillary mass [Unknown]
  - White blood cell count decreased [Unknown]
  - Fatigue [Not Recovered/Not Resolved]
  - Lung disorder [Not Recovered/Not Resolved]
  - Oral pain [Recovered/Resolved]
  - Weight increased [Unknown]

NARRATIVE: CASE EVENT DATE: 201304
